FAERS Safety Report 16416223 (Version 1)
Quarter: 2019Q2

REPORT INFORMATION
  Report Type: Spontaneous
  Country: CN (occurrence: CN)
  Receive Date: 20190611
  Receipt Date: 20190611
  Transmission Date: 20190711
  Serious: Yes (Life-Threatening, Other)
  Sender: FDA-Public Use
  Company Number: CN-009507513-1906CHN002771

PATIENT
  Age: 70 Year
  Sex: Male
  Weight: 60 kg

DRUGS (2)
  1. TIENAM [Suspect]
     Active Substance: CILASTATIN SODIUM\IMIPENEM
     Indication: PNEUMONIA
     Dosage: 1 GRAM, Q8H
     Route: 041
     Dates: start: 20190525, end: 20190531
  2. SODIUM CHLORIDE. [Concomitant]
     Active Substance: SODIUM CHLORIDE
     Indication: MEDICATION DILUTION
     Dosage: 100 MILLILITER, Q8H
     Route: 041
     Dates: start: 20190525, end: 20190531

REACTIONS (2)
  - Haemorrhage urinary tract [Recovering/Resolving]
  - Coagulation test abnormal [Recovering/Resolving]

NARRATIVE: CASE EVENT DATE: 20190529
